FAERS Safety Report 20364019 (Version 3)
Quarter: 2022Q1

REPORT INFORMATION
  Report Type: Spontaneous
  Country: DE (occurrence: DE)
  Receive Date: 20220121
  Receipt Date: 20220225
  Transmission Date: 20220423
  Serious: Yes (Other)
  Sender: FDA-Public Use
  Company Number: DE-ALLERGAN-2202659US

PATIENT
  Sex: Female

DRUGS (1)
  1. BIMATOPROST\TIMOLOL [Suspect]
     Active Substance: BIMATOPROST\TIMOLOL
     Indication: Glaucoma
     Dosage: 1 GTT, QD
     Route: 047
     Dates: start: 20201116, end: 20211201

REACTIONS (1)
  - Sleep apnoea syndrome [Unknown]

NARRATIVE: CASE EVENT DATE: 20210101
